FAERS Safety Report 17237654 (Version 1)
Quarter: 2020Q1

REPORT INFORMATION
  Report Type: Spontaneous
  Country: US (occurrence: US)
  Receive Date: 20200106
  Receipt Date: 20200106
  Transmission Date: 20200409
  Serious: Yes (Death)
  Sender: FDA-Public Use
  Company Number: US-FRESENIUS MEDICAL CARE RENAL THERAPIES GROUP-FMC-1912-001611

PATIENT
  Sex: Male
  Weight: 95 kg

DRUGS (19)
  1. POTASSIUM CHLORIDE. [Concomitant]
     Active Substance: POTASSIUM CHLORIDE
  2. LIPITOR [Concomitant]
     Active Substance: ATORVASTATIN CALCIUM
  3. VITAMIN D3 [Concomitant]
     Active Substance: CHOLECALCIFEROL
  4. VICTOZA INSULIN [Concomitant]
  5. DELFLEX WITH DEXTROSE 1.5% LOW MAGNESIUM LOW CALCIUM [Suspect]
     Active Substance: CALCIUM CHLORIDE\DEXTROSE\MAGNESIUM CHLORIDE\SODIUM CHLORIDE\SODIUM LACTATE
     Indication: END STAGE RENAL DISEASE
     Dosage: TIDAL THERAPY, FILL VOLUME # 1 = 2500 ML, TIDAL FILLS = 2300 ML, NO DAYTIME EXCHANGE
     Route: 033
     Dates: start: 20190429
  6. TYLENOL WITH CODEINE [Concomitant]
     Active Substance: ACETAMINOPHEN\CODEINE PHOSPHATE
  7. NITROSTAT [Concomitant]
     Active Substance: NITROGLYCERIN
     Indication: CHEST PAIN
  8. METAMUCIL [Concomitant]
     Active Substance: PLANTAGO SEED
  9. LASIX [Concomitant]
     Active Substance: FUROSEMIDE
  10. GABAPENTIN. [Concomitant]
     Active Substance: GABAPENTIN
  11. DELFLEX WITH DEXTROSE 2.5% LOW MAGNESIUM LOW CALCIUM [Suspect]
     Active Substance: CALCIUM CHLORIDE\DEXTROSE\MAGNESIUM CHLORIDE\SODIUM CHLORIDE\SODIUM LACTATE
     Indication: END STAGE RENAL DISEASE
     Dosage: TIDAL THERAPY, FILL VOLUME # 1 = 2500 ML, TIDAL FILLS = 2300 ML, NO DAYTIME EXCHANGE
     Route: 033
     Dates: start: 20190429
  12. DELFLEX WITH DEXTROSE 4.25% LOW MAGNESIUM LOW CALCIUM [Suspect]
     Active Substance: CALCIUM CHLORIDE\DEXTROSE\MAGNESIUM CHLORIDE\SODIUM CHLORIDE\SODIUM LACTATE
     Indication: END STAGE RENAL DISEASE
     Dosage: TIDAL THERAPY, FILL VOLUME # 1 = 2500 ML, TIDAL FILLS = 2300 ML, NO DAYTIME EXCHANGE
     Route: 033
     Dates: start: 20190429
  13. MIRALAX [Concomitant]
     Active Substance: POLYETHYLENE GLYCOL 3350
  14. ASPIRIN. [Concomitant]
     Active Substance: ASPIRIN
  15. CALCIUM ACETATE. [Concomitant]
     Active Substance: CALCIUM ACETATE
  16. CARVEDILOL. [Concomitant]
     Active Substance: CARVEDILOL
  17. RENAVITE [Concomitant]
     Active Substance: ASCORBIC ACID\BIOTIN\CALCIUM PANTOTHENATE\CYANOCOBALAMIN\FOLIC ACID\NIACINAMIDE\PYRIDOXINE HYDROCHLORIDE\RIBOFLAVIN\THIAMINE MONONITRATE
  18. INSULIN [Concomitant]
     Active Substance: INSULIN NOS
  19. LEVOCETIRIZINE [Concomitant]
     Active Substance: LEVOCETIRIZINE

REACTIONS (1)
  - Death [Fatal]
